FAERS Safety Report 5104952-6 (Version None)
Quarter: 2006Q3

REPORT INFORMATION
  Report Type: 
  Country: None (occurrence: None)
  Receive Date: 20060911
  Receipt Date: 20060828
  Transmission Date: 20061208
  Serious: Yes (Other)
  Sender: FDA-Public Use
  Company Number: 2006-DE-04515GD

PATIENT
  Sex: Female

DRUGS (6)
  1. PREDNISONE TAB [Suspect]
     Indication: BLINDNESS
  2. PREDNISONE TAB [Suspect]
     Indication: SARCOIDOSIS
  3. CYTOXAN [Suspect]
     Indication: BLINDNESS
  4. CYTOXAN [Suspect]
     Indication: SARCOIDOSIS
  5. THALIDOMIDE (THALIDOMIDE) [Suspect]
     Indication: BLINDNESS
     Dosage: STARTED WITH 100 MG, TITRATED UP TO 800 MG
  6. THALIDOMIDE (THALIDOMIDE) [Suspect]
     Indication: SARCOIDOSIS
     Dosage: STARTED WITH 100 MG, TITRATED UP TO 800 MG

REACTIONS (8)
  - BACK PAIN [None]
  - DRUG INEFFECTIVE [None]
  - DRUG TOXICITY [None]
  - HEADACHE [None]
  - NECK PAIN [None]
  - PAIN IN EXTREMITY [None]
  - SEDATION [None]
  - VISUAL ACUITY REDUCED [None]
